FAERS Safety Report 9196209 (Version 1)
Quarter: 2013Q1

REPORT INFORMATION
  Report Type: Spontaneous
  Country: US (occurrence: None)
  Receive Date: 20120703
  Receipt Date: 20120703
  Transmission Date: 20140127
  Serious: No
  Sender: FDA-Public Use
  Company Number: PHEH2012US005482

PATIENT
  Sex: Female

DRUGS (2)
  1. GILENYA (FTY)CAPSULE, 0.5MG [Suspect]
     Indication: RELAPSING-REMITTING MULTIPLE SCLEROSIS
     Route: 048
     Dates: start: 201111
  2. GENTAMICIN (GENTAMICIN) [Concomitant]

REACTIONS (4)
  - Bladder spasm [None]
  - Urinary tract infection [None]
  - Fatigue [None]
  - Abdominal pain upper [None]
